FAERS Safety Report 8216331-3 (Version None)
Quarter: 2012Q1

REPORT INFORMATION
  Report Type: 
  Country: None (occurrence: None)
  Receive Date: 20120316
  Receipt Date: 20120310
  Transmission Date: 20120608
  Serious: Yes (Other)
  Sender: FDA-Public Use
  Company Number: PHHY2012BR021301

PATIENT
  Age: 22 Year
  Sex: Female

DRUGS (6)
  1. ESPIRONOLACTONA [Concomitant]
     Dosage: 25 MG, DAILY
  2. ATENOLOL [Concomitant]
     Indication: HYPERTENSION
     Dosage: 100 MG, DAILY
  3. VITAMIN D [Concomitant]
  4. ZOLEDRONOC ACID [Suspect]
  5. CALCIUM [Concomitant]
  6. CAPTOPRIL [Concomitant]
     Dosage: 75 MG, DAILY

REACTIONS (4)
  - BLOOD CREATININE INCREASED [None]
  - RASH [None]
  - NEPHROPATHY [None]
  - HYPERKALAEMIA [None]
